FAERS Safety Report 7653954-4 (Version None)
Quarter: 2011Q3

REPORT INFORMATION
  Report Type: 
  Country: None (occurrence: None)
  Receive Date: 20110803
  Receipt Date: 20110801
  Transmission Date: 20111222
  Serious: Yes (Other)
  Sender: FDA-Public Use
  Company Number: CA-PFIZER INC-2011139992

PATIENT
  Age: 65 Year
  Sex: Female
  Weight: 68.027 kg

DRUGS (5)
  1. XALATAN [Suspect]
     Indication: GLAUCOMA
     Dosage: 1 GTT, 2X/DAY IN RIGHT EYE
     Route: 047
     Dates: start: 20090101
  2. AZOPT [Concomitant]
     Dosage: 1 GTT, 1X/DAY AT BEDTIME IN BOTH EYES
  3. PREDNISONE [Concomitant]
     Indication: INFLAMMATION
     Dosage: 1 GTT, 1X/DAY IN THE MORNING, IN BOTH EYES
     Dates: start: 20100101
  4. XALATAN [Suspect]
     Indication: CATARACT
  5. CALCIUM [Concomitant]
     Indication: SUPPLEMENTATION THERAPY
     Dosage: UNK

REACTIONS (2)
  - CATARACT OPERATION [None]
  - INTRAOCULAR PRESSURE INCREASED [None]
